FAERS Safety Report 4654511-4 (Version None)
Quarter: 2005Q2

REPORT INFORMATION
  Report Type: 
  Country: None (occurrence: None)
  Receive Date: 20050504
  Receipt Date: 20050504
  Transmission Date: 20051028
  Serious: No
  Sender: FDA-Public Use
  Company Number: None

PATIENT
  Sex: Female
  Weight: 56.246 kg

DRUGS (1)
  1. AMOXICILLIN [Suspect]
     Indication: SINUSITIS
     Dosage: 1 TID ORAL
     Route: 048
     Dates: start: 20021014, end: 20021015

REACTIONS (1)
  - TOXIC EPIDERMAL NECROLYSIS [None]
